FAERS Safety Report 7006967-X (Version None)
Quarter: 2010Q3

REPORT INFORMATION
  Report Type: 
  Country: None (occurrence: None)
  Receive Date: 20100922
  Receipt Date: 20100913
  Transmission Date: 20110219
  Serious: Yes (Other)
  Sender: FDA-Public Use
  Company Number: US-JNJFOC-20100706078

PATIENT
  Sex: Female
  Weight: 63.5 kg

DRUGS (8)
  1. FENTANYL CITRATE [Suspect]
     Indication: BACK PAIN
     Route: 062
  2. FENTANYL CITRATE [Suspect]
     Route: 062
  3. FENTANYL-100 [Suspect]
     Indication: BACK PAIN
     Route: 062
  4. TEMAZEPAM [Concomitant]
     Indication: SLEEP DISORDER
     Route: 048
  5. ESTROSTEP [Concomitant]
     Indication: MENOPAUSE
     Route: 048
  6. CELEBREX [Concomitant]
     Indication: ARTHRITIS
     Route: 048
  7. LIPITOR [Concomitant]
     Indication: BLOOD CHOLESTEROL
     Route: 048
  8. PLAVIX [Concomitant]
     Indication: CARDIAC DISORDER
     Route: 048

REACTIONS (6)
  - ABDOMINAL DISCOMFORT [None]
  - CATARACT [None]
  - GASTROOESOPHAGEAL REFLUX DISEASE [None]
  - PAIN [None]
  - PRODUCT QUALITY ISSUE [None]
  - ROTATOR CUFF SYNDROME [None]
